FAERS Safety Report 9026190 (Version 1)
Quarter: 2012Q4

REPORT INFORMATION
  Report Type: Spontaneous
  Country: US (occurrence: None)
  Receive Date: 20121207
  Receipt Date: 20121207
  Transmission Date: 20130627
  Serious: Yes (Death)
  Sender: FDA-Public Use
  Company Number: UTC-026198

PATIENT
  Age: 49 Year
  Sex: Female
  Weight: 54.1 kg

DRUGS (1)
  1. TYVASO (6 MICROGRAM, AEROSOL FOR INHALATION) (TREPROSTINIL SODIUM) [Suspect]
     Indication: PRIMARY PULMONARY HYPERTENSION
     Dosage: 18-54 micrograms (4 in 1 D), Inhalation
     Dates: start: 20121126

REACTIONS (1)
  - Death [None]
